FAERS Safety Report 25927756 (Version 1)
Quarter: 2025Q4

REPORT INFORMATION
  Report Type: Report from Study
  Country: US (occurrence: US)
  Receive Date: 20251016
  Receipt Date: 20251016
  Transmission Date: 20260117
  Serious: Yes (Hospitalization)
  Sender: ALEXION PHARMACEUTICALS
  Company Number: 202510NAM010287US

PATIENT
  Sex: Female

DRUGS (2)
  1. FASENRA [Suspect]
     Active Substance: BENRALIZUMAB
     Indication: Asthma
     Dosage: 30 MILLIGRAM, WEEK0
  2. FASENRA [Suspect]
     Active Substance: BENRALIZUMAB

REACTIONS (3)
  - Asthma [Unknown]
  - Pneumonia [Unknown]
  - Seizure [Unknown]
